FAERS Safety Report 12694495 (Version 2)
Quarter: 2016Q3

REPORT INFORMATION
  Report Type: Spontaneous
  Country: DE (occurrence: BR)
  Receive Date: 20160829
  Receipt Date: 20160912
  Transmission Date: 20161109
  Serious: Yes (Other)
  Sender: FDA-Public Use
  Company Number: BR-MERZ NORTH AMERICA, INC.-16MRZ-00514

PATIENT
  Age: 50 Year
  Sex: Female
  Weight: 86 kg

DRUGS (3)
  1. XEOMIN [Suspect]
     Active Substance: INCOBOTULINUMTOXINA
     Indication: SKIN WRINKLING
  2. BOTOX [Concomitant]
     Active Substance: ONABOTULINUMTOXINA
     Dates: start: 20160211, end: 20160211
  3. XEOMIN [Suspect]
     Active Substance: INCOBOTULINUMTOXINA
     Indication: SKIN WRINKLING
     Dosage: 59 IU, 1IN 1 TOTAL
     Route: 058
     Dates: start: 20160722, end: 20160722

REACTIONS (4)
  - Dyspnoea [Recovered/Resolved]
  - Incorrect route of drug administration [Unknown]
  - Off label use [Unknown]
  - Malaise [Recovered/Resolved]
